FAERS Safety Report 5638714-8 (Version None)
Quarter: 2008Q1

REPORT INFORMATION
  Report Type: 
  Country: None (occurrence: None)
  Receive Date: 20080226
  Receipt Date: 20071217
  Transmission Date: 20080703
  Serious: No
  Sender: FDA-Public Use
  Company Number: A0699320A

PATIENT
  Age: 50 Year
  Sex: Male

DRUGS (3)
  1. IMITREX [Suspect]
     Indication: MIGRAINE
     Dosage: 4MG AS REQUIRED
     Route: 058
     Dates: start: 20071214
  2. IMITREX [Suspect]
     Route: 048
  3. COUMADIN [Concomitant]

REACTIONS (3)
  - ADMINISTRATION SITE PAIN [None]
  - DRUG INEFFECTIVE [None]
  - PAIN [None]
